FAERS Safety Report 7177229-5 (Version None)
Quarter: 2010Q4

REPORT INFORMATION
  Report Type: 
  Country: None (occurrence: None)
  Receive Date: 20101215
  Receipt Date: 20101215
  Transmission Date: 20110411
  Serious: Yes (Hospitalization)
  Sender: FDA-Public Use
  Company Number: None

PATIENT
  Sex: Female
  Weight: 17.8 kg

DRUGS (4)
  1. CYTARABINE [Suspect]
     Dosage: 9120 MG
  2. CYTARABINE [Suspect]
  3. ELSPAR [Suspect]
     Dosage: 9240 MG
  4. ELSPAR [Suspect]

REACTIONS (15)
  - ABDOMINAL DISTENSION [None]
  - ABDOMINAL PAIN [None]
  - CEREBRAL INFARCTION [None]
  - COAGULOPATHY [None]
  - ENCEPHALITIS [None]
  - FUNGAL INFECTION [None]
  - HYPOTENSION [None]
  - INTRA-ABDOMINAL PRESSURE INCREASED [None]
  - LOBAR PNEUMONIA [None]
  - PLEURAL EFFUSION [None]
  - PLEURITIC PAIN [None]
  - RENAL FAILURE [None]
  - SEPTIC SHOCK [None]
  - SYSTEMIC INFLAMMATORY RESPONSE SYNDROME [None]
  - URINE OUTPUT DECREASED [None]
